FAERS Safety Report 18973182 (Version 2)
Quarter: 2021Q1

REPORT INFORMATION
  Report Type: Report from Study
  Country: BE (occurrence: BE)
  Receive Date: 20210305
  Receipt Date: 20210323
  Transmission Date: 20210420
  Serious: Yes (Death, Life-Threatening, Hospitalization)
  Sender: FDA-Public Use
  Company Number: BE-PFIZER INC-2021234256

PATIENT
  Age: 45 Year
  Sex: Female
  Weight: 104.2 kg

DRUGS (11)
  1. MEDROL [Suspect]
     Active Substance: METHYLPREDNISOLONE
     Dosage: 60 MG, 1X/DAY
     Route: 042
     Dates: start: 20210224, end: 20210226
  2. LINEZOLID. [Suspect]
     Active Substance: LINEZOLID
     Dosage: UNK
     Dates: start: 20210213
  3. MEDROL [Suspect]
     Active Substance: METHYLPREDNISOLONE
     Indication: CHRONIC GRAFT VERSUS HOST DISEASE
     Dosage: 64 MG, 2X/DAY
     Route: 048
     Dates: start: 20210123, end: 20210131
  4. MEDROL [Suspect]
     Active Substance: METHYLPREDNISOLONE
     Dosage: 96 MG, 1X/DAY
     Route: 048
     Dates: start: 20210209, end: 20210209
  5. MEDROL [Suspect]
     Active Substance: METHYLPREDNISOLONE
     Dosage: 64 MG, 1X/DAY
     Route: 048
     Dates: start: 20210219, end: 20210223
  6. INCB039110 [Suspect]
     Active Substance: ITACITINIB
     Indication: CHRONIC GRAFT VERSUS HOST DISEASE
     Dosage: 200 MG, 1X/DAY
     Route: 048
     Dates: start: 20210125
  7. MEDROL [Suspect]
     Active Substance: METHYLPREDNISOLONE
     Dosage: 32 MG, 1X/DAY
     Route: 048
     Dates: start: 20210211, end: 20210211
  8. MEDROL [Suspect]
     Active Substance: METHYLPREDNISOLONE
     Dosage: 112 MG, 1X/DAY
     Route: 048
     Dates: start: 20210201, end: 20210208
  9. MEDROL [Suspect]
     Active Substance: METHYLPREDNISOLONE
     Dosage: 96 MG, 1X/DAY
     Route: 048
     Dates: start: 20210212, end: 20210212
  10. MEDROL [Suspect]
     Active Substance: METHYLPREDNISOLONE
     Dosage: 80 MG, 1X/DAY
     Route: 048
     Dates: start: 20210213, end: 20210215
  11. MEDROL [Suspect]
     Active Substance: METHYLPREDNISOLONE
     Dosage: 72 MG, 1X/DAY
     Route: 048
     Dates: start: 20210216, end: 20210218

REACTIONS (4)
  - Epilepsy [Recovered/Resolved]
  - Acute kidney injury [Not Recovered/Not Resolved]
  - Sepsis [Fatal]
  - Lactic acidosis [Recovered/Resolved]

NARRATIVE: CASE EVENT DATE: 20210209
